FAERS Safety Report 15258727 (Version 1)
Quarter: 2018Q3

REPORT INFORMATION
  Report Type: Report from Study
  Country: SE (occurrence: SE)
  Receive Date: 20180809
  Receipt Date: 20180809
  Transmission Date: 20181010
  Serious: Yes (Other)
  Sender: FDA-Public Use
  Company Number: SE-ROCHE-2167530

PATIENT
  Age: 57 Year
  Sex: Female

DRUGS (1)
  1. RITUXIMAB. [Suspect]
     Active Substance: RITUXIMAB
     Indication: MULTIPLE SCLEROSIS
     Route: 065

REACTIONS (4)
  - Intestinal perforation [Unknown]
  - Off label use [Unknown]
  - Rectal cancer [Unknown]
  - Intentional product use issue [Unknown]
